FAERS Safety Report 17086396 (Version 1)
Quarter: 2019Q4

REPORT INFORMATION
  Report Type: Report from Study
  Country: None (occurrence: ES)
  Receive Date: 20191128
  Receipt Date: 20191128
  Transmission Date: 20200122
  Serious: Yes (Hospitalization)
  Sender: FDA-Public Use
  Company Number: ES-ABBVIE-19K-144-2991372-00

PATIENT
  Sex: Male
  Weight: 80 kg

DRUGS (1)
  1. DUODOPA [Suspect]
     Active Substance: CARBIDOPA\LEVODOPA
     Indication: PARKINSON^S DISEASE
     Route: 050
     Dates: start: 20180906

REACTIONS (4)
  - Cognitive disorder [Unknown]
  - Behaviour disorder [Recovered/Resolved]
  - On and off phenomenon [Recovered/Resolved]
  - Abnormal behaviour [Unknown]
